FAERS Safety Report 6600586-2 (Version None)
Quarter: 2010Q1

REPORT INFORMATION
  Report Type: 
  Country: None (occurrence: None)
  Receive Date: 20100224
  Receipt Date: 20100204
  Transmission Date: 20100710
  Serious: No
  Sender: FDA-Public Use
  Company Number: US-BAYER-201013990NA

PATIENT

DRUGS (1)
  1. MAGNEVIST [Suspect]
     Indication: DRUG USE FOR UNKNOWN INDICATION
     Dosage: TOTAL DAILY DOSE: 20 ML

REACTIONS (2)
  - NAUSEA [None]
  - VOMITING [None]
